FAERS Safety Report 4832630-7 (Version None)
Quarter: 2005Q4

REPORT INFORMATION
  Report Type: 
  Country: None (occurrence: None)
  Receive Date: 20051121
  Receipt Date: 20051013
  Transmission Date: 20060501
  Serious: Yes (Hospitalization, Other)
  Sender: FDA-Public Use
  Company Number: AU-NOVOPROD-247780

PATIENT
  Age: 75 Year
  Sex: Female
  Weight: 57 kg

DRUGS (6)
  1. NOVOSEVEN [Suspect]
     Indication: ABDOMINAL OPERATION
     Dates: start: 20050519
  2. BLOOD CELLS, PACKED HUMAN [Concomitant]
     Dosage: 1 U, UNK
  3. BLOOD CELLS, PACKED HUMAN [Concomitant]
     Dosage: 10 U, UNK
  4. FRESH FROZEN PLASMA [Concomitant]
     Dosage: 14 UNK, UNK
  5. PLATELETS [Concomitant]
     Dosage: 5 U, UNK
  6. OTHER HAEM PRODUCTS [Concomitant]
     Dosage: 16 U, UNK

REACTIONS (4)
  - CEREBROVASCULAR ACCIDENT [None]
  - HAEMORRHAGE [None]
  - POST PROCEDURAL HAEMORRHAGE [None]
  - RECTAL HAEMORRHAGE [None]
